FAERS Safety Report 6922596-8 (Version None)
Quarter: 2010Q3

REPORT INFORMATION
  Report Type: 
  Country: None (occurrence: None)
  Receive Date: 20100813
  Receipt Date: 20100802
  Transmission Date: 20110219
  Serious: No
  Sender: FDA-Public Use
  Company Number: US-B.I. PHARMACEUTICALS,INC./RIDGEFIELD-2010-BP-08811BP

PATIENT
  Sex: Male
  Weight: 124.74 kg

DRUGS (2)
  1. ZANTAC [Suspect]
     Indication: DYSPEPSIA
     Dosage: 150 MG
     Route: 048
     Dates: start: 20100731, end: 20100731
  2. ZANTAC [Suspect]
     Dosage: 750 MG
     Route: 048
     Dates: start: 20100801, end: 20100801

REACTIONS (1)
  - DYSPEPSIA [None]
